FAERS Safety Report 6268176-1 (Version None)
Quarter: 2009Q3

REPORT INFORMATION
  Report Type: 
  Country: None (occurrence: None)
  Receive Date: 20090715
  Receipt Date: 20090702
  Transmission Date: 20100115
  Serious: Yes (Other)
  Sender: FDA-Public Use
  Company Number: GB-RANBAXY-2009RR-25444

PATIENT

DRUGS (7)
  1. CLARITHROMYCIN [Suspect]
     Indication: DRUG USE FOR UNKNOWN INDICATION
     Dosage: 500 MG, BID
     Route: 048
  2. SIMVASTATIN [Concomitant]
     Dosage: 40 MG, UNK
  3. BISOPROLOL FUMARATE [Concomitant]
     Dosage: 5 MG, UNK
  4. GLICLAZIDE [Concomitant]
     Dosage: 80 MG, UNK
  5. LOSARTAN POTASSIUM [Concomitant]
     Dosage: 15 MG, UNK
  6. CO DYDRAMOL [Concomitant]
  7. PARACETAMOL [Concomitant]

REACTIONS (7)
  - ASTHENIA [None]
  - DECREASED APPETITE [None]
  - DYSGEUSIA [None]
  - FATIGUE [None]
  - LUNG DISORDER [None]
  - MUSCULAR WEAKNESS [None]
  - WEIGHT DECREASED [None]
